FAERS Safety Report 5633224-6 (Version None)
Quarter: 2008Q1

REPORT INFORMATION
  Report Type: 
  Country: None (occurrence: None)
  Receive Date: 20080215
  Receipt Date: 20080206
  Transmission Date: 20080703
  Serious: Yes (Other)
  Sender: FDA-Public Use
  Company Number: 2008-00443

PATIENT
  Age: 61 Year
  Sex: Male

DRUGS (1)
  1. VELCADE [Suspect]
     Indication: MULTIPLE MYELOMA
     Dosage: 1.00 MG/KG, INTRAVENOUS
     Route: 042
     Dates: start: 20080101

REACTIONS (3)
  - ANOREXIA [None]
  - PERSONALITY CHANGE [None]
  - WEIGHT DECREASED [None]
